FAERS Safety Report 5518208-0 (Version None)
Quarter: 2007Q4

REPORT INFORMATION
  Report Type: 
  Country: None (occurrence: None)
  Receive Date: 20071115
  Receipt Date: 20071109
  Transmission Date: 20080405
  Serious: Yes (Life-Threatening, Other)
  Sender: FDA-Public Use
  Company Number: CH-ELI_LILLY_AND_COMPANY-CH200711002218

PATIENT
  Age: 18 Year
  Sex: Male

DRUGS (2)
  1. ZYPREXA [Suspect]
     Indication: SCHIZOID PERSONALITY DISORDER
     Dosage: 10 MG, 2/D
     Route: 048
     Dates: start: 20071017, end: 20071022
  2. LORAZEPAM [Concomitant]
     Indication: SCHIZOID PERSONALITY DISORDER
     Dosage: 2.5 MG, 2/D
     Route: 048
     Dates: start: 20071012, end: 20071025

REACTIONS (1)
  - AGRANULOCYTOSIS [None]
